FAERS Safety Report 15360927 (Version 1)
Quarter: 2018Q3

REPORT INFORMATION
  Report Type: Spontaneous
  Country: DE (occurrence: DE)
  Receive Date: 20180907
  Receipt Date: 20180907
  Transmission Date: 20181010
  Serious: Yes (Other)
  Sender: FDA-Public Use
  Company Number: DE-ALKEM LABORATORIES LIMITED-DE-ALKEM-2018-07314

PATIENT
  Age: 54 Year
  Sex: Male

DRUGS (1)
  1. QUETIAPINE FUMARATE. [Suspect]
     Active Substance: QUETIAPINE FUMARATE
     Indication: BIPOLAR DISORDER
     Dosage: ON RELEASE 0 ? 0 ? 100 ? 100MG THEN 0 ? 0 ? 100 ? 200MG ()
     Route: 048

REACTIONS (2)
  - Schizophrenia [Unknown]
  - Nightmare [Unknown]

NARRATIVE: CASE EVENT DATE: 2018
